FAERS Safety Report 16672933 (Version 1)
Quarter: 2019Q3

REPORT INFORMATION
  Report Type: Spontaneous
  Country: GB (occurrence: GB)
  Receive Date: 20190806
  Receipt Date: 20190806
  Transmission Date: 20191004
  Serious: Yes (Other)
  Sender: FDA-Public Use
  Company Number: GB-PFIZER INC-2019334244

PATIENT
  Age: 79 Year
  Sex: Male
  Weight: 75 kg

DRUGS (39)
  1. CHLORAMPHENICOL [Concomitant]
     Active Substance: CHLORAMPHENICOL
     Dosage: 1 GTT DROPS, Q2+4H IN THE AFFECTED EYE(S)
     Dates: start: 20190625
  2. LOFEPRAMINE [Concomitant]
     Active Substance: LOFEPRAMINE
     Dosage: 2 DF, QD
     Dates: start: 20000704, end: 20190625
  3. DEPO-MEDRONE [Concomitant]
     Active Substance: METHYLPREDNISOLONE
     Dosage: UNK STAT
     Dates: start: 20070424, end: 20190625
  4. ACIDEX [CALCIUM CARBONATE;SODIUM ALGINATE;SODIUM BICARBONATE] [Concomitant]
     Dosage: 10 ML, PRN (10 ML AFTER FOOD AND AT NIGHT AS REQUIRED)
     Dates: start: 20050531, end: 20190625
  5. RANITIDINE. [Concomitant]
     Active Substance: RANITIDINE
     Dosage: 2 DF, QD
     Dates: start: 19900326
  6. RAMIPRIL. [Suspect]
     Active Substance: RAMIPRIL
     Dosage: 2.5 MG, QD
     Route: 065
     Dates: start: 20000316
  7. IRBESARTAN. [Concomitant]
     Active Substance: IRBESARTAN
     Dosage: 1 DF, QD
     Dates: start: 20060728, end: 20190625
  8. PARACETAMOL [Concomitant]
     Active Substance: ACETAMINOPHEN
     Dosage: UNK AS DIRECTED
     Dates: start: 20000719, end: 20190625
  9. CREON [Concomitant]
     Active Substance: PANCRELIPASE AMYLASE\PANCRELIPASE LIPASE\PANCRELIPASE PROTEASE
     Dosage: UNK 2 WITH EACH MEAL
     Dates: start: 20160208
  10. FULTIUM D3 [Concomitant]
     Active Substance: CHOLECALCIFEROL
     Dosage: 2 DF, QD
     Dates: start: 20160208
  11. IBUPROFEN. [Concomitant]
     Active Substance: IBUPROFEN
     Dosage: UNK APPLY UP TO THREE TIMES A DAY
     Dates: start: 20190405, end: 20190518
  12. BENDROFLUMETHIAZIDE [Concomitant]
     Active Substance: BENDROFLUMETHIAZIDE
     Dosage: 1 DF, QD IN THE MORNING
     Dates: start: 20031114, end: 20190625
  13. DOSULEPIN HYDROCHLORIDE [Concomitant]
     Active Substance: DOTHIEPIN HYDROCHLORIDE
     Dosage: 1 DF, HS
     Dates: start: 19900525, end: 20190625
  14. BEZALIP [Concomitant]
     Active Substance: BEZAFIBRATE
     Dosage: 1 DF, HS
     Dates: start: 19940221, end: 20190625
  15. METFORMIN [Concomitant]
     Active Substance: METFORMIN HYDROCHLORIDE
     Dosage: 6 DF, QD
     Dates: start: 20010910, end: 20190625
  16. CODEINE PHOSPHATE [Concomitant]
     Active Substance: CODEINE PHOSPHATE
     Dosage: UNK ONE OR TWO TO BE TAKEN AS REQUIRED
     Dates: start: 20000719, end: 20190625
  17. LACIDIPINE [Concomitant]
     Active Substance: LACIDIPINE
     Dosage: 1 DF, QD
     Dates: start: 20050803, end: 20190625
  18. DIHYDROCODEINE [Concomitant]
     Active Substance: DIHYDROCODEINE
     Dosage: 4 DF, QD
     Dates: start: 20020213, end: 20190625
  19. NITROFURANTOIN. [Concomitant]
     Active Substance: NITROFURANTOIN
     Dosage: 2 DF, QD
     Dates: start: 20190625
  20. RISPERIDONE. [Concomitant]
     Active Substance: RISPERIDONE
     Dosage: UNK ONE TABLET EACH DAY AND ONE ADDITONAL TABLET WH...
     Dates: start: 20180717
  21. ATORVASTATIN [Concomitant]
     Active Substance: ATORVASTATIN
     Dosage: 1 DF, QD APPLY UP TO THREE TIMES A DAY
     Dates: start: 20000614
  22. FLUCLOXACILLIN [Concomitant]
     Active Substance: FLUCLOXACILLIN
     Dosage: 4 DF, QD
     Dates: start: 20190502, end: 20190531
  23. HUMULIN L [Concomitant]
     Active Substance: INSULIN HUMAN
     Dosage: UNK FOR SUBCUTANEOUS INJECTION, ACCORDING TO REQUIREMENTS
     Route: 058
     Dates: start: 20190625, end: 20190626
  24. TRAMADOL. [Concomitant]
     Active Substance: TRAMADOL
     Dosage: UNK TWO TO BE TAKEN FOUR TIMES A DAY AS REQUIRED
     Dates: start: 20020109, end: 20190625
  25. FOLIC ACID. [Concomitant]
     Active Substance: FOLIC ACID
     Dosage: 1 DF, QD
     Dates: start: 20160814
  26. CO-PROXAMOL [Concomitant]
     Active Substance: ACETAMINOPHEN\PROPOXYPHENE HYDROCHLORIDE
     Dosage: UNK AS DIRECTED
     Dates: start: 20020816, end: 20190625
  27. TRIMETHOPRIM. [Concomitant]
     Active Substance: TRIMETHOPRIM
     Dosage: 2 DF, QD
     Dates: start: 20190531, end: 20190601
  28. DOXAZOSIN [Concomitant]
     Active Substance: DOXAZOSIN MESYLATE
     Dosage: 1 DF, QD IN THE MORNING
     Dates: start: 20010606
  29. ATENOLOL. [Concomitant]
     Active Substance: ATENOLOL
     Dosage: 1 DF, QD IN THE MORNING
     Dates: start: 20000517
  30. RIVASTIGMINE. [Concomitant]
     Active Substance: RIVASTIGMINE
     Dosage: 1 DF, CONT
     Dates: start: 20171204
  31. DOCUSATE SODIUM. [Concomitant]
     Active Substance: DOCUSATE SODIUM
     Dosage: UNK UP TO TWO TWICE DAILY
     Dates: start: 20171222, end: 20190625
  32. AMITRIPTYLINE HYDROCHLORIDE. [Concomitant]
     Active Substance: AMITRIPTYLINE HYDROCHLORIDE
     Dosage: 1 DF, HS
     Dates: start: 20040318, end: 20190625
  33. HUMULIN M3 [Concomitant]
     Active Substance: INSULIN HUMAN
     Dosage: UNK 10 ML AFTER FOOD AND AT NIGHT AS REQUIRED
     Dates: start: 20101026, end: 20190624
  34. GABAPENTIN. [Concomitant]
     Active Substance: GABAPENTIN
     Dosage: UNK AS DIRECTED
     Dates: start: 20071231, end: 20190625
  35. AMLODIPINE [Concomitant]
     Active Substance: AMLODIPINE BESYLATE
     Dosage: 1 DF, QD
     Dates: start: 20050524, end: 20190625
  36. CANDESARTAN. [Concomitant]
     Active Substance: CANDESARTAN
     Dosage: 1 DF, QD
     Dates: start: 20060928, end: 20190625
  37. DICLOFENAC DIETHYLAMINE [Concomitant]
     Active Substance: DICLOFENAC DIETHYLAMINE
     Dosage: UNK APPLY THREE OR FOUR TIMES A DAY
     Dates: start: 20190501, end: 20190613
  38. NISOLDIPINE. [Concomitant]
     Active Substance: NISOLDIPINE
     Dosage: 1 DF, QD IN THE MORNING
     Dates: start: 19970807, end: 20190625
  39. MORPHINE SULFATE. [Concomitant]
     Active Substance: MORPHINE SULFATE
     Indication: PAIN
     Dosage: UNK 5MLS PRN FOR PAIN MAX 2 HOURLY
     Dates: start: 20160331, end: 20190625

REACTIONS (1)
  - Drug intolerance [Unknown]

NARRATIVE: CASE EVENT DATE: 20190627
